FAERS Safety Report 23872707 (Version 1)
Quarter: 2024Q2

REPORT INFORMATION
  Report Type: Report from Study
  Country: ZA (occurrence: ZA)
  Receive Date: 20240520
  Receipt Date: 20240520
  Transmission Date: 20240716
  Serious: Yes (Hospitalization, Other)
  Sender: FDA-Public Use
  Company Number: ZA-ABBVIE-5762080

PATIENT
  Age: 54 Year
  Sex: Female

DRUGS (1)
  1. HUMIRA [Suspect]
     Active Substance: ADALIMUMAB
     Indication: Crohn^s disease
     Dosage: PATIENT ONLY RECEIVED LOADING DOSE
     Route: 058
     Dates: start: 20230504, end: 202308

REACTIONS (1)
  - Ileal perforation [Unknown]

NARRATIVE: CASE EVENT DATE: 20230101
